FAERS Safety Report 19183150 (Version 1)
Quarter: 2021Q2

REPORT INFORMATION
  Report Type: Spontaneous
  Country: ES (occurrence: ES)
  Receive Date: 20210427
  Receipt Date: 20210427
  Transmission Date: 20210717
  Serious: Yes (Hospitalization, Other)
  Sender: FDA-Public Use
  Company Number: ES-AUROBINDO-AUR-APL-2021-017056

PATIENT
  Age: 15 Year
  Sex: Male
  Weight: 60 kg

DRUGS (1)
  1. PARACETAMOL [Suspect]
     Active Substance: ACETAMINOPHEN
     Indication: PRODUCT USED FOR UNKNOWN INDICATION
     Dosage: 22 GRAM, TOTAL (22 GR DE PARACETAMOL (354 MG/KG) EL 02/04 A LAS 02:00H)
     Route: 048
     Dates: start: 20210402, end: 20210402

REACTIONS (1)
  - Hepatitis [Recovering/Resolving]

NARRATIVE: CASE EVENT DATE: 20210405
